FAERS Safety Report 14296983 (Version 1)
Quarter: 2017Q4

REPORT INFORMATION
  Report Type: Spontaneous
  Country: US (occurrence: US)
  Receive Date: 20171218
  Receipt Date: 20171218
  Transmission Date: 20180321
  Serious: Yes (Other)
  Sender: FDA-Public Use
  Company Number: None

PATIENT
  Age: 64 Year
  Sex: Male
  Weight: 63.8 kg

DRUGS (1)
  1. PROAIR HFA [Suspect]
     Active Substance: ALBUTEROL SULFATE
     Indication: CHRONIC OBSTRUCTIVE PULMONARY DISEASE
     Dosage: 2 PUFFS Q4H PRN INHALATION?DATES OF USE - 3-4 MONTHS, LATE 2017
     Route: 055
     Dates: start: 2017

REACTIONS (2)
  - Dysphonia [None]
  - Product substitution issue [None]

NARRATIVE: CASE EVENT DATE: 20170915
